FAERS Safety Report 10053538 (Version 2)
Quarter: 2014Q2

REPORT INFORMATION
  Report Type: Spontaneous
  Country: US (occurrence: US)
  Receive Date: 20140402
  Receipt Date: 20140501
  Transmission Date: 20141212
  Serious: No
  Sender: FDA-Public Use
  Company Number: US-PFIZER INC-2014089443

PATIENT
  Age: 61 Year
  Sex: Female
  Weight: 48.98 kg

DRUGS (4)
  1. SUTENT [Suspect]
     Indication: THYMIC CANCER METASTATIC
     Dosage: 37.5 MG, CYCLIC (FOUR WEEK ON AND TWO WEEKS WASH OUT PERIOD)
     Route: 048
     Dates: start: 20140103
  2. SYNTHROID [Concomitant]
     Indication: THYROID DISORDER
     Dosage: UNK
  3. LEXAPRO [Concomitant]
     Dosage: UNK
  4. ATIVAN [Concomitant]
     Dosage: UNK

REACTIONS (4)
  - Gastrointestinal disorder [Recovered/Resolved]
  - Gastrooesophageal reflux disease [Recovered/Resolved]
  - Stomatitis [Recovered/Resolved]
  - Off label use [Unknown]
